FAERS Safety Report 6649977-4 (Version None)
Quarter: 2010Q1

REPORT INFORMATION
  Report Type: 
  Country: None (occurrence: None)
  Receive Date: 20100324
  Receipt Date: 20100324
  Transmission Date: 20100710
  Serious: Yes (Other)
  Sender: FDA-Public Use
  Company Number: None

PATIENT
  Sex: Male
  Weight: 42.1845 kg

DRUGS (2)
  1. MS CONTIN [Suspect]
     Indication: EHLERS-DANLOS SYNDROME
  2. MS CONTIN [Suspect]
     Indication: FIBROMYALGIA

REACTIONS (2)
  - NAUSEA [None]
  - NO THERAPEUTIC RESPONSE [None]
